FAERS Safety Report 8873934 (Version 3)
Quarter: 2013Q3

REPORT INFORMATION
  Report Type: Spontaneous
  Country: US (occurrence: US)
  Receive Date: 20121023
  Receipt Date: 20130814
  Transmission Date: 20140515
  Serious: Yes (Hospitalization, Other)
  Sender: FDA-Public Use
  Company Number: US-009507513-1206USA00012

PATIENT
  Sex: Female
  Weight: 73.16 kg

DRUGS (15)
  1. FOSAMAX [Suspect]
     Indication: SENILE OSTEOPOROSIS
     Dosage: 70 MG, QW
     Route: 048
     Dates: start: 200507
  2. FOSAMAX PLUS D [Suspect]
     Indication: OSTEOPOROSIS
     Dosage: 70 MG, QW
     Route: 048
     Dates: start: 200711, end: 200812
  3. FOSAMAX [Suspect]
     Indication: OSTEOPOROSIS
     Dosage: 70 MG, QW
     Route: 048
     Dates: start: 200903, end: 200910
  4. ALENDRONATE SODIUM [Suspect]
     Indication: OSTEOPOROSIS
  5. CORTICOSTEROIDS (UNSPECIFIED) [Concomitant]
     Indication: PRODUCT USED FOR UNKNOWN INDICATION
     Dosage: UNK
     Dates: start: 199809, end: 200912
  6. GOLD [Concomitant]
     Indication: RHEUMATOID ARTHRITIS
     Dosage: UNK
     Dates: start: 1998, end: 200807
  7. METHOTREXATE [Concomitant]
     Indication: RHEUMATOID ARTHRITIS
     Dosage: UNK
     Dates: start: 1998, end: 200807
  8. PREDNISONE [Concomitant]
     Indication: RHEUMATOID ARTHRITIS
     Dosage: 5 MG, QD
  9. DARVOCET-N [Concomitant]
     Indication: PAIN
     Dosage: 100 MG, PRN
  10. VYTORIN [Concomitant]
     Indication: HYPERLIPIDAEMIA
     Dosage: 10/40
     Route: 048
  11. CIPRO [Concomitant]
     Indication: PRODUCT USED FOR UNKNOWN INDICATION
     Dosage: UNK
     Dates: start: 199906
  12. PROPOXYPHENE [Concomitant]
     Indication: PAIN
     Dosage: UNK
     Dates: start: 199810, end: 200712
  13. CALCIUM CARBONATE [Concomitant]
     Indication: SENILE OSTEOPOROSIS
  14. VITAMIN D (UNSPECIFIED) [Concomitant]
     Indication: SENILE OSTEOPOROSIS
  15. PRILOSEC [Concomitant]
     Indication: GASTROOESOPHAGEAL REFLUX DISEASE
     Dosage: 20 MG, QD

REACTIONS (60)
  - Femur fracture [Unknown]
  - Femur fracture [Unknown]
  - Intramedullary rod insertion [Unknown]
  - Anaemia [Unknown]
  - Open reduction of fracture [Unknown]
  - Medical device removal [Unknown]
  - Rectal haemorrhage [Recovering/Resolving]
  - Renal failure acute [Recovering/Resolving]
  - Dehydration [Recovering/Resolving]
  - Urinary tract infection [Unknown]
  - Sepsis syndrome [Recovering/Resolving]
  - Dehydration [Recovering/Resolving]
  - Cystitis escherichia [Unknown]
  - Femur fracture [Unknown]
  - Urosepsis [Recovering/Resolving]
  - Renal failure chronic [Not Recovered/Not Resolved]
  - Appendicectomy [Unknown]
  - Abdominal discomfort [Recovering/Resolving]
  - Abdominal pain [Unknown]
  - Constipation [Recovering/Resolving]
  - Depression [Unknown]
  - Low turnover osteopathy [Unknown]
  - Anxiety [Unknown]
  - Asthma [Unknown]
  - Large intestine polyp [Unknown]
  - Fracture delayed union [Unknown]
  - Device failure [Unknown]
  - Sleep disorder [Unknown]
  - Fall [Unknown]
  - Cataract operation [Unknown]
  - Atrial fibrillation [Unknown]
  - Periarthritis [Unknown]
  - Spondylolisthesis [Unknown]
  - Intervertebral disc protrusion [Unknown]
  - Arthropathy [Unknown]
  - Spinal osteoarthritis [Unknown]
  - Venous insufficiency [Unknown]
  - Muscle strain [Unknown]
  - Transaminases increased [Recovering/Resolving]
  - Iron deficiency anaemia [Unknown]
  - Haemoglobin decreased [Unknown]
  - Gallbladder disorder [Unknown]
  - Cholelithiasis [Unknown]
  - Gallbladder polyp [Unknown]
  - Haemorrhoids [Unknown]
  - Dysuria [Unknown]
  - Blood creatinine increased [Recovering/Resolving]
  - Cough [Unknown]
  - Hydronephrosis [Unknown]
  - Plantar fasciitis [Unknown]
  - Pollakiuria [Unknown]
  - Limb injury [Unknown]
  - Contusion [Unknown]
  - Osteoarthritis [Unknown]
  - Oedema peripheral [Unknown]
  - Back pain [Not Recovered/Not Resolved]
  - Pain in extremity [Unknown]
  - Abdominal pain [Unknown]
  - Constipation [Unknown]
  - Muscle spasms [Unknown]
